FAERS Safety Report 5446253-2 (Version None)
Quarter: 2007Q3

REPORT INFORMATION
  Report Type: 
  Country: None (occurrence: None)
  Receive Date: 20070907
  Receipt Date: 20070904
  Transmission Date: 20080115
  Serious: Yes (Hospitalization)
  Sender: FDA-Public Use
  Company Number: HQWYE195924JUL07

PATIENT
  Age: 56 Year
  Sex: Female

DRUGS (1)
  1. HYPEN [Suspect]
     Indication: ARTHRALGIA
     Route: 048
     Dates: start: 20060101, end: 20060701

REACTIONS (2)
  - GLOMERULONEPHRITIS MEMBRANOUS [None]
  - MUSCULOSKELETAL STIFFNESS [None]
